FAERS Safety Report 9119601 (Version 1)
Quarter: 2013Q1

REPORT INFORMATION
  Report Type: Spontaneous
  Country: US (occurrence: US)
  Receive Date: 20130226
  Receipt Date: 20130226
  Transmission Date: 20140127
  Serious: No
  Sender: FDA-Public Use
  Company Number: US-PFIZER INC-2013069975

PATIENT
  Age: 44 Year
  Sex: Female
  Weight: 69 kg

DRUGS (2)
  1. LYRICA [Suspect]
     Indication: ARTHRALGIA
     Dosage: 150 MG, 1X/DAY
     Route: 048
     Dates: start: 20130212
  2. MIRAPEX [Concomitant]
     Dosage: 0.375 MG, UNK

REACTIONS (7)
  - Anxiety [Unknown]
  - Arthralgia [Unknown]
  - Malaise [Unknown]
  - Local swelling [Unknown]
  - Sensation of heaviness [Unknown]
  - Intentional drug misuse [Unknown]
  - Off label use [Unknown]
